FAERS Safety Report 14418677 (Version 1)
Quarter: 2018Q1

REPORT INFORMATION
  Report Type: Spontaneous
  Country: US (occurrence: US)
  Receive Date: 20180122
  Receipt Date: 20180122
  Transmission Date: 20180509
  Serious: No
  Sender: FDA-Public Use
  Company Number: US-TEVA-794028ACC

PATIENT
  Sex: Female

DRUGS (1)
  1. METFORMIN HYDROCHLORIDE. [Suspect]
     Active Substance: METFORMIN HYDROCHLORIDE
     Indication: DIABETES MELLITUS
     Dosage: EXTENDED RELEASE TABLET

REACTIONS (4)
  - Malabsorption [Unknown]
  - Diarrhoea [Unknown]
  - Medication residue present [Unknown]
  - Inappropriate schedule of drug administration [Unknown]
